FAERS Safety Report 12305207 (Version 2)
Quarter: 2016Q2

REPORT INFORMATION
  Report Type: Spontaneous
  Country: ZM (occurrence: ZM)
  Receive Date: 20160426
  Receipt Date: 20160511
  Transmission Date: 20160815
  Serious: Yes (Death, Hospitalization)
  Sender: FDA-Public Use
  Company Number: PHHY2016ZM055062

PATIENT
  Age: 37 Year
  Sex: Male

DRUGS (1)
  1. GLIVEC [Suspect]
     Active Substance: IMATINIB MESYLATE
     Indication: CHRONIC MYELOID LEUKAEMIA
     Dosage: 400 MG, DAILY
     Route: 048
     Dates: start: 20150601, end: 20160213

REACTIONS (13)
  - Haematuria [Fatal]
  - Haemorrhage [Fatal]
  - Anaemia [Unknown]
  - Sepsis [Unknown]
  - Fungal infection [Unknown]
  - Chronic myeloid leukaemia [Fatal]
  - Lymphoma [Fatal]
  - Diarrhoea [Unknown]
  - Dizziness [Unknown]
  - Restlessness [Unknown]
  - Thrombocytopenia [Fatal]
  - Arthralgia [Unknown]
  - Pallor [Unknown]

NARRATIVE: CASE EVENT DATE: 20160213
